FAERS Safety Report 5356861-5 (Version None)
Quarter: 2007Q2

REPORT INFORMATION
  Report Type: 
  Country: None (occurrence: None)
  Receive Date: 20070614
  Receipt Date: 20061211
  Transmission Date: 20071010
  Serious: No
  Sender: FDA-Public Use
  Company Number: US-ASTRAZENECA-2006UW27435

PATIENT
  Sex: Male

DRUGS (3)
  1. ATACAND [Suspect]
     Route: 048
     Dates: start: 20061209, end: 20061210
  2. MAVIK [Concomitant]
  3. CHILDRENS ASPIRIN [Concomitant]

REACTIONS (6)
  - ASTHENIA [None]
  - DIZZINESS [None]
  - EUPHORIC MOOD [None]
  - HYPOAESTHESIA [None]
  - NERVOUSNESS [None]
  - VISUAL DISTURBANCE [None]
